FAERS Safety Report 7533156-2 (Version None)
Quarter: 2011Q2

REPORT INFORMATION
  Report Type: 
  Country: None (occurrence: None)
  Receive Date: 20110608
  Receipt Date: 20021112
  Transmission Date: 20111010
  Serious: Yes (Death)
  Sender: FDA-Public Use
  Company Number: PHBS2002CA07304

PATIENT
  Sex: Male

DRUGS (1)
  1. CLOZAPINE [Suspect]
     Dosage: 300 MG, QD
     Route: 048
     Dates: start: 19980101, end: 20020617

REACTIONS (2)
  - CHORDOMA [None]
  - BRAIN NEOPLASM [None]
